FAERS Safety Report 7547530-1 (Version None)
Quarter: 2011Q2

REPORT INFORMATION
  Report Type: 
  Country: None (occurrence: None)
  Receive Date: 20110614
  Receipt Date: 20110608
  Transmission Date: 20111010
  Serious: No
  Sender: FDA-Public Use
  Company Number: US-PFIZER INC-2011125768

PATIENT
  Sex: Female
  Weight: 65.76 kg

DRUGS (9)
  1. ASPIRIN [Concomitant]
     Dosage: 81 MG, 1X/DAY
  2. LIPITOR [Suspect]
     Indication: BLOOD CHOLESTEROL INCREASED
     Dosage: 80 MG, 1X/DAY
     Route: 048
     Dates: start: 20110101
  3. SYNTHROID [Concomitant]
     Indication: THYROID OPERATION
     Dosage: UNK
  4. NEXIUM [Concomitant]
     Indication: GASTROOESOPHAGEAL REFLUX DISEASE
     Dosage: 40 MG, UNK
  5. DIOVAN [Concomitant]
     Dosage: 80 MG, UNK
  6. VITAMIN D [Concomitant]
     Dosage: UNK
  7. OXYBUTYNIN [Concomitant]
     Dosage: 10 MG, UNK
  8. VITAMIN B-12 [Concomitant]
     Dosage: UNK
  9. FLUTICASONE [Concomitant]
     Indication: SINUSITIS
     Dosage: 5 UG/ML, UNK

REACTIONS (1)
  - DYSPHAGIA [None]
